FAERS Safety Report 6635574-3 (Version None)
Quarter: 2010Q1

REPORT INFORMATION
  Report Type: 
  Country: None (occurrence: None)
  Receive Date: 20100311
  Receipt Date: 20100311
  Transmission Date: 20100710
  Serious: Yes (Life-Threatening, Hospitalization)
  Sender: FDA-Public Use
  Company Number: None

PATIENT
  Age: 30 Year
  Sex: Male
  Weight: 94.8018 kg

DRUGS (1)
  1. PHENYTOIN [Suspect]
     Indication: CONVULSION
     Dosage: 4 NIGHTLY

REACTIONS (4)
  - ANXIETY [None]
  - CONFUSIONAL STATE [None]
  - COORDINATION ABNORMAL [None]
  - HALLUCINATION [None]
